FAERS Safety Report 24108448 (Version 1)
Quarter: 2024Q3

REPORT INFORMATION
  Report Type: Report from Study
  Country: CA (occurrence: None)
  Receive Date: 20240718
  Receipt Date: 20240718
  Transmission Date: 20241016
  Serious: Yes (Hospitalization)
  Sender: ASTRAZENECA
  Company Number: 2020SE03890

PATIENT
  Age: 65 Year
  Sex: Male

DRUGS (4)
  1. SYMBICORT [Suspect]
     Active Substance: BUDESONIDE\FORMOTEROL FUMARATE DIHYDRATE
     Dosage: UNKNOWN, UNKNOWN UNKNOWN
     Route: 055
  2. ZAFIRLUKAST [Suspect]
     Active Substance: ZAFIRLUKAST
     Dosage: UNKNOWN
     Route: 065
  3. GLYCOPYRROLATE [Suspect]
     Active Substance: GLYCOPYRROLATE
     Dosage: UNKNOWN
     Route: 065
  4. ALBUTEROL SULFATE [Suspect]
     Active Substance: ALBUTEROL SULFATE
     Dosage: UNKNOWN
     Route: 065

REACTIONS (22)
  - Abdominal distension [Unknown]
  - Full blood count abnormal [Unknown]
  - Chest discomfort [Unknown]
  - Condition aggravated [Unknown]
  - Cough [Unknown]
  - Dyspnoea [Unknown]
  - Dyspnoea exertional [Unknown]
  - Forced vital capacity decreased [Unknown]
  - Impaired quality of life [Unknown]
  - Obesity [Unknown]
  - Obstructive airways disorder [Unknown]
  - Pain [Unknown]
  - Pain in extremity [Unknown]
  - Physical deconditioning [Unknown]
  - Productive cough [Unknown]
  - Respiratory symptom [Unknown]
  - Respiratory tract congestion [Unknown]
  - Rhonchi [Unknown]
  - Sputum discoloured [Unknown]
  - Weight increased [Unknown]
  - Wheezing [Unknown]
  - Drug ineffective [Unknown]
